FAERS Safety Report 5757388-9 (Version None)
Quarter: 2008Q2

REPORT INFORMATION
  Report Type: 
  Country: None (occurrence: None)
  Receive Date: 20080603
  Receipt Date: 20080523
  Transmission Date: 20081010
  Serious: Yes (Hospitalization)
  Sender: FDA-Public Use
  Company Number: IT-SANOFI-SYNTHELABO-A06200800270

PATIENT
  Sex: Male

DRUGS (4)
  1. CALFOLEX [Concomitant]
     Indication: COLON CANCER STAGE III
     Route: 042
  2. ELOXATIN [Suspect]
     Indication: COLON CANCER STAGE III
     Route: 042
  3. FLUOROURACIL [Suspect]
     Indication: COLON CANCER STAGE III
     Route: 042
  4. FLUOROURACIL [Suspect]
     Route: 042

REACTIONS (2)
  - ATRIAL FIBRILLATION [None]
  - PULMONARY EMBOLISM [None]
